APPROVED DRUG PRODUCT: MORPHINE SULFATE
Active Ingredient: MORPHINE SULFATE
Strength: 60MG
Dosage Form/Route: TABLET, EXTENDED RELEASE;ORAL
Application: A203602 | Product #003
Applicant: NOVEL LABORATORIES INC
Approved: Dec 16, 2015 | RLD: No | RS: No | Type: DISCN